FAERS Safety Report 15370848 (Version 1)
Quarter: 2018Q4

REPORT INFORMATION
  Report Type: Spontaneous
  Country: SG (occurrence: SG)
  Receive Date: 20180911
  Receipt Date: 20180911
  Transmission Date: 20190204
  Serious: Yes (Life-Threatening, Hospitalization, Other)
  Sender: FDA-Public Use
  Company Number: SG-PURACAP PHARMACEUTICAL LLC-2018EPC00406

PATIENT
  Age: 75 Year
  Sex: Male

DRUGS (8)
  1. ATENOLOL. [Concomitant]
     Active Substance: ATENOLOL
     Dosage: 25 MG
     Route: 065
  2. ATORVASTATIN [Concomitant]
     Active Substance: ATORVASTATIN
     Dosage: 40 MG
     Route: 065
  3. NOVOMIX 30/70 [Suspect]
     Active Substance: INSULIN ASPART
     Dosage: 36 U AFTER BREAKFAST
     Route: 058
  4. NOVOMIX 30/70 [Suspect]
     Active Substance: INSULIN ASPART
     Dosage: 16 U AFTER DINNER
     Route: 058
  5. NOVOMIX 30/70 [Suspect]
     Active Substance: INSULIN ASPART
     Dosage: 2 CARTRIDGES, ONCE
     Route: 058
  6. AMLODIPINE [Suspect]
     Active Substance: AMLODIPINE BESYLATE
     Dosage: 140 MG (28 TABLETS), ONCE
     Route: 048
  7. LINAGLIPTIN [Concomitant]
     Active Substance: LINAGLIPTIN
     Dosage: 5 MG
     Route: 065
  8. AMLODIPINE [Suspect]
     Active Substance: AMLODIPINE BESYLATE
     Dosage: 5 MG, 1X/DAY
     Route: 048

REACTIONS (5)
  - Hypotension [Recovered/Resolved]
  - Intentional overdose [Recovered/Resolved]
  - Hypoglycaemia [Recovered/Resolved]
  - Suicide attempt [Recovered/Resolved]
  - Hyperglycaemia [Recovered/Resolved]
